FAERS Safety Report 5065664-0 (Version None)
Quarter: 2006Q3

REPORT INFORMATION
  Report Type: 
  Country: None (occurrence: None)
  Receive Date: 20060714
  Receipt Date: 20060523
  Transmission Date: 20061208
  Serious: No
  Sender: FDA-Public Use
  Company Number: 2006SP002158

PATIENT
  Age: 60 Year
  Sex: Female
  Weight: 65.7716 kg

DRUGS (6)
  1. LUNESTA [Suspect]
     Indication: SLEEP DISORDER
     Dosage: 3 MG;1X;ORAL
     Route: 048
     Dates: start: 20060522, end: 20060522
  2. PANTOPRAZOLE SODIUM [Concomitant]
  3. ELAVIL [Concomitant]
  4. TRICOR [Concomitant]
  5. CELEBREX [Concomitant]
  6. ATENOLOL [Concomitant]

REACTIONS (4)
  - ABNORMAL DREAMS [None]
  - DIARRHOEA [None]
  - DYSGEUSIA [None]
  - STOMACH DISCOMFORT [None]
